FAERS Safety Report 6223515-2 (Version None)
Quarter: 2009Q2

REPORT INFORMATION
  Report Type: 
  Country: None (occurrence: None)
  Receive Date: 20090610
  Receipt Date: 20090528
  Transmission Date: 20091009
  Serious: Yes (Hospitalization)
  Sender: FDA-Public Use
  Company Number: 2009SP001379

PATIENT
  Age: 70 Year
  Sex: Female

DRUGS (9)
  1. XOPENEX HFA [Suspect]
     Indication: CHRONIC OBSTRUCTIVE PULMONARY DISEASE
     Dosage: 45 UG; PRN; INHALATION, 45 UG; PRN; INHALATION
     Route: 055
     Dates: start: 20081201, end: 20090409
  2. XOPENEX HFA [Suspect]
     Indication: CHRONIC OBSTRUCTIVE PULMONARY DISEASE
     Dosage: 45 UG; PRN; INHALATION, 45 UG; PRN; INHALATION
     Route: 055
     Dates: start: 20090416
  3. XOPENEX HFA [Suspect]
     Indication: CHRONIC OBSTRUCTIVE PULMONARY DISEASE
     Dosage: 1.25 MG/3 ML; BID; INHALATION, 1.35 MG ML; BID; INHALATION
     Route: 055
     Dates: start: 20081201, end: 20090409
  4. XOPENEX HFA [Suspect]
     Indication: CHRONIC OBSTRUCTIVE PULMONARY DISEASE
     Dosage: 1.25 MG/3 ML; BID; INHALATION, 1.35 MG ML; BID; INHALATION
     Route: 055
     Dates: start: 20090416
  5. SPIRIVA [Concomitant]
  6. ADVAIR HFA [Concomitant]
  7. MAGNESIUM SULFATE [Concomitant]
  8. FAMOTIDINE [Concomitant]
  9. DUONEB [Concomitant]

REACTIONS (3)
  - ANXIETY [None]
  - DRUG EFFECT DECREASED [None]
  - DYSPNOEA [None]
